FAERS Safety Report 8612886-5 (Version None)
Quarter: 2012Q3

REPORT INFORMATION
  Report Type: 
  Country: None (occurrence: None)
  Receive Date: 20120822
  Receipt Date: 20120813
  Transmission Date: 20120928
  Serious: Yes (Other)
  Sender: FDA-Public Use
  Company Number: CN-ASTRAZENECA-2012SE58127

PATIENT
  Age: 20922 Day
  Sex: Male
  Weight: 63 kg

DRUGS (3)
  1. GINKGO DIPYRIDOLUM [Suspect]
  2. GLUCOSE [Suspect]
  3. FELODIPINE [Suspect]
     Indication: HYPERTENSION
     Route: 048
     Dates: start: 20100816, end: 20100816

REACTIONS (1)
  - GRAND MAL CONVULSION [None]
